FAERS Safety Report 17871430 (Version 1)
Quarter: 2020Q2

REPORT INFORMATION
  Report Type: Spontaneous
  Country: US (occurrence: US)
  Receive Date: 20200608
  Receipt Date: 20200608
  Transmission Date: 20200714
  Serious: Yes (Other)
  Sender: FDA-Public Use
  Company Number: None

PATIENT
  Age: 73 Year
  Sex: Male

DRUGS (7)
  1. CHLORTHALIDONE. [Concomitant]
     Active Substance: CHLORTHALIDONE
  2. IMATINIB. [Suspect]
     Active Substance: IMATINIB MESYLATE
     Indication: CHRONIC MYELOID LEUKAEMIA
     Route: 048
  3. LORATADINE. [Concomitant]
     Active Substance: LORATADINE
  4. DUTASTERIDE. [Concomitant]
     Active Substance: DUTASTERIDE
  5. IBUPROFEN. [Concomitant]
     Active Substance: IBUPROFEN
  6. SILDENAFIL CITRATE. [Concomitant]
     Active Substance: SILDENAFIL CITRATE
  7. OMEPRAZOLE. [Concomitant]
     Active Substance: OMEPRAZOLE

REACTIONS (4)
  - Joint effusion [None]
  - Dyspnoea [None]
  - Dizziness [None]
  - Fluid retention [None]

NARRATIVE: CASE EVENT DATE: 20200414
